FAERS Safety Report 5072133-0 (Version None)
Quarter: 2006Q3

REPORT INFORMATION
  Report Type: 
  Country: None (occurrence: None)
  Receive Date: 20060717
  Receipt Date: 20060306
  Transmission Date: 20061208
  Serious: No
  Sender: FDA-Public Use
  Company Number: 2006000561

PATIENT
  Age: 62 Year
  Sex: Male

DRUGS (1)
  1. TARCEVA [Suspect]
     Indication: NON-SMALL CELL LUNG CANCER
     Dosage: 150 MG (QD), ORAL
     Route: 048

REACTIONS (5)
  - APPETITE DISORDER [None]
  - DERMATITIS ACNEIFORM [None]
  - DYSGEUSIA [None]
  - ORAL DISCOMFORT [None]
  - STOMATITIS [None]
